FAERS Safety Report 9356684 (Version 1)
Quarter: 2013Q2

REPORT INFORMATION
  Report Type: Spontaneous
  Country: FR (occurrence: FR)
  Receive Date: 20130619
  Receipt Date: 20130619
  Transmission Date: 20140414
  Serious: Yes (Other)
  Sender: FDA-Public Use
  Company Number: FR-MYLANLABS-2013S1012723

PATIENT
  Age: 26 Year
  Sex: Male

DRUGS (3)
  1. METHADONE [Suspect]
     Indication: DRUG DEPENDENCE
     Dosage: 40MG DAILY
     Route: 065
     Dates: start: 20120903
  2. METHADONE [Suspect]
     Indication: DRUG DEPENDENCE
     Dosage: 50 MG DAILY ON SEPTEMBER 4TH
     Route: 065
     Dates: start: 20120903
  3. METHADONE [Suspect]
     Indication: DRUG DEPENDENCE
     Dosage: 60 MG ON SEPTEMBER 6TH
     Route: 065
     Dates: start: 20120903

REACTIONS (1)
  - Priapism [Recovered/Resolved]
